FAERS Safety Report 8880479 (Version 1)
Quarter: 2012Q4

REPORT INFORMATION
  Report Type: 
  Country: GB (occurrence: GB)
  Receive Date: 20121031
  Receipt Date: 20121031
  Transmission Date: 20130627
  Serious: Yes (Other)
  Sender: FDA-Public Use
  Company Number: GB-009507513-1210GBR013332

PATIENT
  Age: 60 Year
  Sex: Male

DRUGS (1)
  1. PROPECIA 1MG FILM-COATED TABLET [Suspect]
     Dosage: 1 mg, qd
     Route: 048
     Dates: start: 20100120, end: 20121010

REACTIONS (1)
  - Testicular mass [Not Recovered/Not Resolved]
